FAERS Safety Report 13273161 (Version 1)
Quarter: 2017Q1

REPORT INFORMATION
  Report Type: Spontaneous
  Country: US (occurrence: US)
  Receive Date: 20170227
  Receipt Date: 20170227
  Transmission Date: 20170428
  Serious: No
  Sender: FDA-Public Use
  Company Number: None

PATIENT
  Age: 52 Year
  Sex: Female
  Weight: 72 kg

DRUGS (12)
  1. ONDANSETRONODT [Concomitant]
  2. DEXAMETHASONE. [Suspect]
     Active Substance: DEXAMETHASONE
     Indication: CENTRAL NERVOUS SYSTEM INFECTION
     Dosage: ?          QUANTITY:18 TABLET(S);?
     Route: 048
     Dates: start: 20170224, end: 20170227
  3. DEXAMETHASONE. [Suspect]
     Active Substance: DEXAMETHASONE
     Indication: BRAIN NEOPLASM
     Dosage: ?          QUANTITY:18 TABLET(S);?
     Route: 048
     Dates: start: 20170224, end: 20170227
  4. DOCUSATE [Concomitant]
     Active Substance: DOCUSATE
  5. DOXYCYCLINE MONOHYDRATE [Concomitant]
     Active Substance: DOXYCYCLINE
  6. SENNA [Suspect]
     Active Substance: SENNA LEAF\SENNOSIDES\SENNOSIDES A AND B
     Indication: BRAIN NEOPLASM
     Dosage: ?          QUANTITY:2 TABLET(S);?
     Route: 048
     Dates: start: 20170224, end: 20170227
  7. ACYCLOVIR. [Concomitant]
     Active Substance: ACYCLOVIR
  8. SENNA [Suspect]
     Active Substance: SENNA LEAF\SENNOSIDES\SENNOSIDES A AND B
     Indication: CENTRAL NERVOUS SYSTEM INFECTION
     Dosage: ?          QUANTITY:2 TABLET(S);?
     Route: 048
     Dates: start: 20170224, end: 20170227
  9. HYDROCODON ACETAMINOPHEN [Concomitant]
  10. KEPPRA [Concomitant]
     Active Substance: LEVETIRACETAM
  11. FEMOTIDINE [Concomitant]
  12. POLYETALENE [Concomitant]

REACTIONS (6)
  - Drug dispensing error [None]
  - Product label issue [None]
  - Incorrect dose administered [None]
  - Product packaging quantity issue [None]
  - Physical product label issue [None]
  - Inappropriate schedule of drug administration [None]

NARRATIVE: CASE EVENT DATE: 20170224
